FAERS Safety Report 25040137 (Version 1)
Quarter: 2025Q1

REPORT INFORMATION
  Report Type: Spontaneous
  Country: CN (occurrence: CN)
  Receive Date: 20250305
  Receipt Date: 20250305
  Transmission Date: 20250409
  Serious: Yes (Life-Threatening, Hospitalization, Other)
  Sender: GRANULES PHARMACEUTICALS INC
  Company Number: CN-GRANULES-CN-2025GRALIT00090

PATIENT
  Age: 7 Year
  Sex: Male

DRUGS (1)
  1. ACETAMINOPHEN [Suspect]
     Active Substance: ACETAMINOPHEN
     Indication: Pyrexia
     Route: 048

REACTIONS (1)
  - Toxic epidermal necrolysis [Recovered/Resolved]
